FAERS Safety Report 10795785 (Version 1)
Quarter: 2015Q1

REPORT INFORMATION
  Report Type: Spontaneous
  Country: HR (occurrence: HR)
  Receive Date: 20150215
  Receipt Date: 20150215
  Transmission Date: 20150721
  Serious: Yes (Other)
  Sender: FDA-Public Use
  Company Number: PHHY2015HR014269

PATIENT
  Age: 42 Year
  Sex: Female

DRUGS (2)
  1. KLIMICIN [Suspect]
     Active Substance: CLINDAMYCIN PHOSPHATE
     Indication: ACUTE SINUSITIS
     Dosage: 300 MG, TID
     Route: 048
     Dates: start: 20150116
  2. SYMBICORT [Concomitant]
     Active Substance: BUDESONIDE\FORMOTEROL FUMARATE DIHYDRATE
     Indication: ASTHMA
     Route: 055

REACTIONS (4)
  - Gingival pain [Unknown]
  - Throat irritation [Unknown]
  - Gingival swelling [Unknown]
  - Gingival erosion [Unknown]

NARRATIVE: CASE EVENT DATE: 20150118
